FAERS Safety Report 6710526-3 (Version None)
Quarter: 2010Q2

REPORT INFORMATION
  Report Type: 
  Country: None (occurrence: None)
  Receive Date: 20100504
  Receipt Date: 20100310
  Transmission Date: 20101027
  Serious: Yes (Hospitalization)
  Sender: FDA-Public Use
  Company Number: FR-BAYER-201018905GPV

PATIENT
  Age: 25 Year
  Sex: Male

DRUGS (6)
  1. NIMOTOP [Suspect]
     Indication: DRUG USE FOR UNKNOWN INDICATION
     Dosage: SYRINGE, THEN TABLETS
     Dates: end: 20100212
  2. VISIPAQUE [Suspect]
     Indication: DRUG USE FOR UNKNOWN INDICATION
     Route: 042
     Dates: start: 20100205, end: 20100205
  3. IOMERON-150 [Suspect]
     Indication: DRUG USE FOR UNKNOWN INDICATION
     Route: 042
     Dates: start: 20100205, end: 20100205
  4. KEPPRA [Suspect]
     Indication: DRUG USE FOR UNKNOWN INDICATION
     Route: 048
     Dates: start: 20100205, end: 20100206
  5. PERFALGAN [Concomitant]
  6. HEPARIN [Concomitant]
     Route: 042

REACTIONS (1)
  - ACUTE GENERALISED EXANTHEMATOUS PUSTULOSIS [None]
